FAERS Safety Report 9240321 (Version 1)
Quarter: 2013Q1

REPORT INFORMATION
  Report Type: Spontaneous
  Country: US (occurrence: None)
  Receive Date: 20121119
  Receipt Date: 20121119
  Transmission Date: 20140127
  Serious: Yes (Other)
  Sender: FDA-Public Use
  Company Number: 065837

PATIENT
  Age: 52 Year
  Sex: Male
  Weight: 101.8 kg

DRUGS (4)
  1. LACOSAMIDE [Suspect]
     Indication: CONVULSION
     Dates: start: 201207
  2. LAMICTAL [Concomitant]
  3. DESOXIMETASONE [Concomitant]
  4. TIAZAC [Concomitant]

REACTIONS (5)
  - Suicidal ideation [None]
  - Convulsion [None]
  - Dry skin [None]
  - Rash [None]
  - Vision blurred [None]
